FAERS Safety Report 8589377-3 (Version None)
Quarter: 2012Q3

REPORT INFORMATION
  Report Type: 
  Country: None (occurrence: None)
  Receive Date: 20120813
  Receipt Date: 20120808
  Transmission Date: 20120928
  Serious: Yes (Hospitalization)
  Sender: FDA-Public Use
  Company Number: PHHY2012IT069289

PATIENT

DRUGS (3)
  1. VALPROATE SODIUM [Suspect]
     Indication: GASTROINTESTINAL DISORDER
     Dosage: 1000 MG, DAILY
     Route: 048
     Dates: start: 20110628, end: 20120627
  2. TEGRETOL [Suspect]
     Dosage: 800 MG, DAILY
     Route: 048
     Dates: start: 20110628, end: 20120627
  3. DELORAZEPAM [Suspect]
     Dosage: 30 DRP, DAILY
     Route: 048
     Dates: start: 20110628, end: 20120627

REACTIONS (3)
  - BALANCE DISORDER [None]
  - HYPERSOMNIA [None]
  - ASTHENIA [None]
